FAERS Safety Report 8142033-8 (Version None)
Quarter: 2012Q1

REPORT INFORMATION
  Report Type: 
  Country: None (occurrence: None)
  Receive Date: 20120216
  Receipt Date: 20120209
  Transmission Date: 20120608
  Serious: Yes (Hospitalization)
  Sender: FDA-Public Use
  Company Number: FR-MERCK-1202USA01817

PATIENT
  Age: 74 Year
  Sex: Female

DRUGS (12)
  1. DESLORATADINE [Suspect]
     Route: 048
  2. FOSAMAX PLUS D [Suspect]
     Route: 048
  3. MOVIPREP [Suspect]
     Route: 048
  4. RHINOCORT [Suspect]
     Route: 055
  5. SINGULAIR [Suspect]
     Route: 048
  6. ALDALIX [Suspect]
     Route: 048
  7. ACETAMINOPHEN [Suspect]
     Route: 048
     Dates: end: 20111106
  8. ZOPICLONE [Suspect]
     Route: 048
  9. ACETAMINOPHEN [Suspect]
     Route: 048
  10. CALCIUM CARBONATE [Suspect]
     Route: 048
     Dates: end: 20111106
  11. FLUTICASONE PROPIONATE/SALMETEROL [Suspect]
     Route: 048
  12. GINKOR FORT [Suspect]
     Route: 048

REACTIONS (1)
  - CONFUSIONAL STATE [None]
